FAERS Safety Report 21462528 (Version 1)
Quarter: 2022Q4

REPORT INFORMATION
  Report Type: Spontaneous
  Country: US (occurrence: US)
  Receive Date: 20221016
  Receipt Date: 20221016
  Transmission Date: 20230113
  Serious: No
  Sender: FDA-Public Use
  Company Number: US-BRISTOL-MYERS SQUIBB COMPANY-2022-121966

PATIENT
  Age: 56 Year
  Sex: Male
  Weight: 97.52 kg

DRUGS (1)
  1. CAMZYOS [Suspect]
     Active Substance: MAVACAMTEN
     Indication: Hypertrophic cardiomyopathy
     Route: 048
     Dates: start: 2022

REACTIONS (2)
  - Off label use [Unknown]
  - Mental disorder [Unknown]

NARRATIVE: CASE EVENT DATE: 20221001
